FAERS Safety Report 25626711 (Version 2)
Quarter: 2025Q3

REPORT INFORMATION
  Report Type: Report from Study
  Country: US (occurrence: US)
  Receive Date: 20250731
  Receipt Date: 20250804
  Transmission Date: 20251021
  Serious: Yes (Other)
  Sender: ORGANON
  Company Number: US-BBU-2025000179

PATIENT

DRUGS (1)
  1. TOFIDENCE [Suspect]
     Active Substance: TOCILIZUMAB-BAVI
     Indication: Prophylaxis against transplant rejection

REACTIONS (2)
  - Liver function test increased [Unknown]
  - Off label use [Unknown]
